FAERS Safety Report 9473595 (Version 2)
Quarter: 2013Q3

REPORT INFORMATION
  Report Type: Spontaneous
  Country: US (occurrence: US)
  Receive Date: 20130823
  Receipt Date: 20130823
  Transmission Date: 20140515
  Serious: Yes (Other)
  Sender: FDA-Public Use
  Company Number: US-BRISTOL-MYERS SQUIBB COMPANY-16589426

PATIENT
  Age: 70 Year
  Sex: Female
  Weight: 60 kg

DRUGS (1)
  1. SPRYCEL (CML) TABS 100 MG [Suspect]
     Indication: CHRONIC MYELOID LEUKAEMIA
     Dosage: TABS
     Dates: start: 20120405, end: 20120430

REACTIONS (2)
  - Malignant neoplasm progression [Unknown]
  - Oedema peripheral [Unknown]
